FAERS Safety Report 20634920 (Version 1)
Quarter: 2022Q1

REPORT INFORMATION
  Report Type: Spontaneous
  Country: US (occurrence: US)
  Receive Date: 20220325
  Receipt Date: 20220325
  Transmission Date: 20220423
  Serious: No
  Sender: FDA-Public Use
  Company Number: US-BoehringerIngelheim-2022-BI-161445

PATIENT
  Sex: Male

DRUGS (6)
  1. JARDIANCE [Suspect]
     Active Substance: EMPAGLIFLOZIN
     Indication: Product used for unknown indication
  2. COREG [Concomitant]
     Active Substance: CARVEDILOL
     Indication: Product used for unknown indication
  3. Entresto 24-26 [Concomitant]
     Indication: Product used for unknown indication
  4. Flomax 0.4 mg [Concomitant]
     Indication: Product used for unknown indication
  5. ELIQUIS [Concomitant]
     Active Substance: APIXABAN
     Indication: Product used for unknown indication
  6. LIPITOR [Concomitant]
     Active Substance: ATORVASTATIN CALCIUM
     Indication: Product used for unknown indication

REACTIONS (3)
  - Orthostatic hypotension [Unknown]
  - Fall [Unknown]
  - Spinal fracture [Unknown]

NARRATIVE: CASE EVENT DATE: 20220319
